FAERS Safety Report 4998618-0 (Version None)
Quarter: 2006Q2

REPORT INFORMATION
  Report Type: 
  Country: None (occurrence: None)
  Receive Date: 20060509
  Receipt Date: 20060426
  Transmission Date: 20061013
  Serious: Yes (Hospitalization)
  Sender: FDA-Public Use
  Company Number: CERZ-10592

PATIENT
  Age: 26 Month
  Sex: Female
  Weight: 7 kg

DRUGS (9)
  1. CEREZYME [Suspect]
     Indication: GAUCHER'S DISEASE
     Dosage: 1200 UNTIS Q2WKS IV
     Route: 042
     Dates: start: 20050930
  2. CEREZYME [Suspect]
  3. CEREZYME [Suspect]
  4. CEREZYME [Suspect]
     Indication: GAUCHER'S DISEASE
     Dosage: 1000 UNITS Q2WKS IV
     Route: 042
     Dates: start: 20040908, end: 20050915
  5. CEREZYME [Suspect]
     Indication: GAUCHER'S DISEASE
     Dosage: 800 UNITS Q2WKS IV
     Route: 042
     Dates: start: 20030813, end: 20040824
  6. CLOBAZAM [Concomitant]
  7. AMBROXOL HYDROCHLORIDE [Concomitant]
  8. CARBOCYSTEINE [Concomitant]
  9. TPN [Concomitant]

REACTIONS (12)
  - BRONCHITIS ACUTE [None]
  - DEHYDRATION [None]
  - DIFFICULT TO WEAN FROM VENTILATOR [None]
  - EPILEPSY [None]
  - GASTROINTESTINAL HAEMORRHAGE [None]
  - HYPERTONIA [None]
  - LIVER FUNCTION TEST ABNORMAL [None]
  - PNEUMONIA [None]
  - RESPIRATORY DISORDER [None]
  - RESPIRATORY FAILURE [None]
  - SLEEP DISORDER [None]
  - VIRAL INFECTION [None]
